FAERS Safety Report 10258458 (Version 1)
Quarter: 2014Q2

REPORT INFORMATION
  Report Type: Spontaneous
  Country: US (occurrence: None)
  Receive Date: 20140623
  Receipt Date: 20140623
  Transmission Date: 20141212
  Serious: Yes (Other)
  Sender: FDA-Public Use
  Company Number: UNT-2014-002378

PATIENT
  Age: 59 Year
  Sex: Female

DRUGS (3)
  1. TYVASO [Suspect]
     Indication: COR PULMONALE CHRONIC
     Route: 055
     Dates: start: 20121220, end: 20140611
  2. LETAIRIS (AMBRISENTAN) [Concomitant]
  3. REVATIO (SILDENAFIL CIRATE) [Concomitant]

REACTIONS (1)
  - Lung transplant [None]
